FAERS Safety Report 24752978 (Version 1)
Quarter: 2024Q4

REPORT INFORMATION
  Report Type: Spontaneous
  Country: US (occurrence: US)
  Receive Date: 20241219
  Receipt Date: 20241219
  Transmission Date: 20250114
  Serious: Yes (Hospitalization)
  Sender: MANKIND PHARMA
  Company Number: US-MankindUS-000296

PATIENT
  Age: 37 Year
  Sex: Female

DRUGS (7)
  1. HALOPERIDOL DECANOATE [Suspect]
     Active Substance: HALOPERIDOL DECANOATE
     Indication: Agitation
     Dosage: ANOTHER 2MG AFTER BECOMING PHYSICALLY COMBATIVE OVERNIGHT
  2. QUETIAPINE [Concomitant]
     Active Substance: QUETIAPINE
     Indication: Bipolar disorder
  3. LORAZEPAM [Concomitant]
     Active Substance: LORAZEPAM
     Indication: Bipolar disorder
  4. METHIMAZOLE [Concomitant]
     Active Substance: METHIMAZOLE
     Indication: Hyperthyroidism
  5. PROPRANOLOL [Concomitant]
     Active Substance: PROPRANOLOL HYDROCHLORIDE
     Indication: Hyperthyroidism
  6. PROPYLTHIOURACIL [Concomitant]
     Active Substance: PROPYLTHIOURACIL
  7. POTASSIUM IODIDE [Concomitant]
     Active Substance: POTASSIUM IODIDE

REACTIONS (1)
  - Catatonia [Recovered/Resolved]
